FAERS Safety Report 11675821 (Version 3)
Quarter: 2015Q4

REPORT INFORMATION
  Report Type: Spontaneous
  Country: IT (occurrence: IT)
  Receive Date: 20151028
  Receipt Date: 20151106
  Transmission Date: 20160304
  Serious: Yes (Hospitalization)
  Sender: FDA-Public Use
  Company Number: IT-PFIZER INC-2015357462

PATIENT
  Age: 82 Year
  Sex: Male

DRUGS (7)
  1. ATENOLOL. [Suspect]
     Active Substance: ATENOLOL
     Indication: HYPERTENSION
     Dosage: 50 MG, 1X/DAY
     Route: 048
  2. PEPTAZOLE /01263204/ [Concomitant]
  3. PLAVIX [Concomitant]
     Active Substance: CLOPIDOGREL BISULFATE
  4. MONOCINQUE [Concomitant]
     Active Substance: ISOSORBIDE MONONITRATE
     Dosage: 2 DF, UNK
     Route: 048
  5. NOVONORM [Interacting]
     Active Substance: REPAGLINIDE
     Indication: TYPE 2 DIABETES MELLITUS
     Dosage: 3 DF, 1X/DAY
     Route: 048
  6. TORVAST [Concomitant]
     Active Substance: ATORVASTATIN
  7. METFORMIN HCL [Interacting]
     Active Substance: METFORMIN HYDROCHLORIDE
     Indication: TYPE 2 DIABETES MELLITUS
     Dosage: 3000 MG, DAILY
     Route: 048

REACTIONS (4)
  - Drug interaction [Recovering/Resolving]
  - Hypoglycaemia [Recovering/Resolving]
  - Vision blurred [Recovering/Resolving]
  - Hyperhidrosis [Recovering/Resolving]

NARRATIVE: CASE EVENT DATE: 20150628
